FAERS Safety Report 11313475 (Version 1)
Quarter: 2015Q3

REPORT INFORMATION
  Report Type: Spontaneous
  Country: US (occurrence: None)
  Receive Date: 20150724
  Receipt Date: 20150724
  Transmission Date: 20151125
  Serious: Yes (Life-Threatening, Hospitalization)
  Sender: FDA-Public Use
  Company Number: None

PATIENT
  Age: 19 Year
  Sex: Male
  Weight: 86.18 kg

DRUGS (15)
  1. GEODON [Concomitant]
     Active Substance: ZIPRASIDONE HYDROCHLORIDE\ZIPRASIDONE MESYLATE
  2. LITHIUM. [Concomitant]
     Active Substance: LITHIUM
  3. XANAX [Suspect]
     Active Substance: ALPRAZOLAM
     Indication: ANXIETY
     Dosage: 3-4 PER DAY
     Route: 048
  4. COGENTIN [Suspect]
     Active Substance: BENZTROPINE MESYLATE
     Indication: DRUG WITHDRAWAL SYNDROME
     Dosage: 4-5 DAYS
     Route: 048
  5. COGENTIN [Suspect]
     Active Substance: BENZTROPINE MESYLATE
     Indication: HALLUCINATION
     Dosage: 4-5 DAYS
     Route: 048
  6. TRAZODONE [Concomitant]
     Active Substance: TRAZODONE HYDROCHLORIDE
  7. EMSAM [Concomitant]
     Active Substance: SELEGILINE
  8. HERBAL SUPPLEMENTS [Concomitant]
  9. VITAMIN B COMPLEX [Concomitant]
     Active Substance: CYANOCOBALAMIN\DEXPANTHENOL\NIACINAMIDE\PYRIDOXINE HYDROCHLORIDE\RIBOFLAVIN 5^-PHOSPHATE SODIUM\THIAMINE HYDROCHLORIDE\VITAMIN B COMPLEX
  10. COGENTIN [Suspect]
     Active Substance: BENZTROPINE MESYLATE
     Indication: PARANOIA
     Dosage: 4-5 DAYS
     Route: 048
  11. VITAMINS [Concomitant]
     Active Substance: VITAMINS
  12. FOLATE [Concomitant]
     Active Substance: FOLATE SODIUM
  13. XANAX [Suspect]
     Active Substance: ALPRAZOLAM
     Indication: PANIC ATTACK
     Dosage: 3-4 PER DAY
     Route: 048
  14. XANAX [Suspect]
     Active Substance: ALPRAZOLAM
     Indication: DEPRESSION
     Dosage: 3-4 PER DAY
     Route: 048
  15. VITD3 [Concomitant]

REACTIONS (13)
  - Hallucination, auditory [None]
  - Drug resistance [None]
  - Anger [None]
  - Suicide attempt [None]
  - Amnesia [None]
  - Neuroleptic malignant syndrome [None]
  - Agitation [None]
  - Anxiety [None]
  - Withdrawal syndrome [None]
  - Hallucination, visual [None]
  - Abdominal pain [None]
  - Confusional state [None]
  - Hyperhidrosis [None]

NARRATIVE: CASE EVENT DATE: 20150719
